FAERS Safety Report 4595507-0 (Version None)
Quarter: 2005Q1

REPORT INFORMATION
  Report Type: 
  Country: None (occurrence: None)
  Receive Date: 20050224
  Receipt Date: 20050203
  Transmission Date: 20050727
  Serious: Yes (Death)
  Sender: FDA-Public Use
  Company Number: USA041082467

PATIENT
  Age: 61 Year
  Sex: Male
  Weight: 98 kg

DRUGS (6)
  1. ZYPREXA [Suspect]
     Indication: MAJOR DEPRESSION
     Dosage: 10 MG DAY
     Dates: start: 20030801, end: 20041001
  2. REMERON (MIRTAZAPINE ORIFARM) [Concomitant]
  3. AMBIEN [Concomitant]
  4. KLONOPIN [Concomitant]
  5. VIOXX [Concomitant]
  6. PLENDIL [Concomitant]

REACTIONS (6)
  - BLOOD CHOLESTEROL INCREASED [None]
  - FATIGUE [None]
  - HIGH DENSITY LIPOPROTEIN DECREASED [None]
  - LOW DENSITY LIPOPROTEIN INCREASED [None]
  - MYOCARDIAL INFARCTION [None]
  - SUDDEN DEATH [None]
